FAERS Safety Report 6059088-7 (Version None)
Quarter: 2009Q1

REPORT INFORMATION
  Report Type: 
  Country: None (occurrence: None)
  Receive Date: 20090130
  Receipt Date: 20090121
  Transmission Date: 20090719
  Serious: Yes (Death)
  Sender: FDA-Public Use
  Company Number: US-JNJFOC-20040405705

PATIENT
  Sex: Male
  Weight: 60.78 kg

DRUGS (7)
  1. DURAGESIC-100 [Suspect]
     Route: 062
  2. DURAGESIC-100 [Suspect]
     Indication: PAIN
     Route: 062
  3. NEURONTIN [Concomitant]
     Indication: HERPES ZOSTER
     Dosage: DAILY
     Route: 048
  4. ATIVAN [Concomitant]
     Indication: HERPES ZOSTER
     Route: 048
  5. TEGRETOL [Concomitant]
  6. ACYCLOVIR [Concomitant]
  7. LORAZEPAM [Concomitant]

REACTIONS (1)
  - ASPHYXIA [None]
